FAERS Safety Report 10900814 (Version 1)
Quarter: 2015Q1

REPORT INFORMATION
  Report Type: Not Available
  Country: CA (occurrence: CA)
  Receive Date: 20150310
  Receipt Date: 20150310
  Transmission Date: 20150721
  Serious: Yes (Hospitalization)
  Sender: FDA-Public Use
  Company Number: CA-NAPPMUNDI-CAN-2015-0005629

PATIENT
  Age: 47 Year
  Sex: Male

DRUGS (2)
  1. HUMIRA [Suspect]
     Active Substance: ADALIMUMAB
     Indication: CROHN^S DISEASE
     Dosage: 40 MG, Q 2 WEEKS
     Route: 058
  2. HYDROMORPHONE HCL [Suspect]
     Active Substance: HYDROMORPHONE HYDROCHLORIDE
     Indication: RIB FRACTURE
     Dosage: UNK
     Route: 065

REACTIONS (7)
  - Renal failure [Unknown]
  - Dehydration [Unknown]
  - Adverse drug reaction [Unknown]
  - Delusion [Unknown]
  - Rib fracture [Unknown]
  - Fall [Unknown]
  - Incoherent [Unknown]
